FAERS Safety Report 19325746 (Version 1)
Quarter: 2021Q2

REPORT INFORMATION
  Report Type: Spontaneous
  Country: US (occurrence: US)
  Receive Date: 20210528
  Receipt Date: 20210528
  Transmission Date: 20210717
  Serious: No
  Sender: FDA-Public Use
  Company Number: US-BEH-2021132070

PATIENT
  Sex: Male

DRUGS (1)
  1. HIZENTRA [Suspect]
     Active Substance: HUMAN IMMUNOGLOBULIN G
     Indication: AUTONOMIC NEUROPATHY
     Dosage: 16 GRAM, QW
     Route: 058
     Dates: start: 202101

REACTIONS (4)
  - Off label use [Unknown]
  - Hypotension [Recovering/Resolving]
  - No adverse event [Unknown]
  - Tachycardia [Recovering/Resolving]
